APPROVED DRUG PRODUCT: CALCIUM GLUCONATE
Active Ingredient: CALCIUM GLUCONATE
Strength: 10GM/100ML (100MG/ML)
Dosage Form/Route: SOLUTION;INTRAVENOUS
Application: A216541 | Product #001 | TE Code: AP
Applicant: B BRAUN MEDICAL INC
Approved: Aug 21, 2023 | RLD: No | RS: No | Type: RX